FAERS Safety Report 12385219 (Version 1)
Quarter: 2016Q2

REPORT INFORMATION
  Report Type: Spontaneous
  Country: US (occurrence: None)
  Receive Date: 20160518
  Receipt Date: 20160518
  Transmission Date: 20160815
  Serious: No
  Sender: FDA-Public Use
  Company Number: None

PATIENT
  Sex: Male

DRUGS (1)
  1. HARVONI [Suspect]
     Active Substance: LEDIPASVIR\SOFOSBUVIR
     Indication: HEPATITIS C
     Dosage: TAKE ONE TABLET ONCE DAILY FOR 12 WEEKS BY MOUTH
     Route: 048
     Dates: start: 20160429

REACTIONS (6)
  - Fatigue [None]
  - Feeling abnormal [None]
  - Facial paralysis [None]
  - Hypoaesthesia [None]
  - Headache [None]
  - Photopsia [None]
